FAERS Safety Report 4850761-2 (Version None)
Quarter: 2005Q4

REPORT INFORMATION
  Report Type: 
  Country: None (occurrence: None)
  Receive Date: 20051208
  Receipt Date: 20051201
  Transmission Date: 20060501
  Serious: Yes (Hospitalization, Other)
  Sender: FDA-Public Use
  Company Number: 2005-11-1595

PATIENT
  Age: 1 Day
  Weight: 1.4 kg

DRUGS (3)
  1. CELESTONE [Suspect]
     Indication: NEONATAL RESPIRATORY DISTRESS SYNDROME
     Dosage: 24MG
     Route: 064
     Dates: start: 20051012, end: 20051013
  2. CELESTONE [Suspect]
     Indication: PROPHYLAXIS
     Dosage: 24MG
     Route: 064
     Dates: start: 20051012, end: 20051013
  3. LOXEN               (NICARDIPINE) INJECTABLE SOLUTION [Suspect]
     Indication: PREMATURE LABOUR
     Dosage: 5MG/5ML INTRAVENOUS
     Route: 042
     Dates: start: 20051012, end: 20051015

REACTIONS (4)
  - APGAR SCORE LOW [None]
  - CAESAREAN SECTION [None]
  - DRUG EXPOSURE DURING PREGNANCY [None]
  - PREMATURE BABY [None]
